FAERS Safety Report 9743218 (Version 1)
Quarter: 2013Q4

REPORT INFORMATION
  Report Type: Report from Study
  Country: FR (occurrence: FR)
  Receive Date: 20131210
  Receipt Date: 20131210
  Transmission Date: 20140711
  Serious: Yes (Other)
  Sender: FDA-Public Use
  Company Number: FR-PFIZER INC-2013351354

PATIENT
  Sex: 0

DRUGS (4)
  1. VERAPAMIL HCL [Suspect]
     Dosage: UNK
  2. OMEPRAZOLE [Concomitant]
  3. ISOSORBIDE DINITRATE [Concomitant]
  4. LORAZEPAM [Concomitant]

REACTIONS (1)
  - Linear IgA disease [Unknown]
